FAERS Safety Report 9938692 (Version 1)
Quarter: 2014Q1

REPORT INFORMATION
  Report Type: Spontaneous
  Country: US (occurrence: US)
  Receive Date: 20140303
  Receipt Date: 20140303
  Transmission Date: 20141002
  Serious: No
  Sender: FDA-Public Use
  Company Number: US-009507513-1402USA013558

PATIENT
  Sex: 0

DRUGS (1)
  1. NEXPLANON [Suspect]

REACTIONS (2)
  - Device deployment issue [Unknown]
  - Implant site erythema [Unknown]
